FAERS Safety Report 10861298 (Version 1)
Quarter: 2015Q1

REPORT INFORMATION
  Report Type: Spontaneous
  Country: US (occurrence: None)
  Receive Date: 20150218
  Receipt Date: 20150218
  Transmission Date: 20150721
  Serious: Yes (Hospitalization)
  Sender: FDA-Public Use
  Company Number: None

PATIENT
  Age: 75 Year
  Sex: Male
  Weight: 74.8 kg

DRUGS (12)
  1. ELIQUIS [Concomitant]
     Active Substance: APIXABAN
  2. ISOSORBIDE MONITRATE [Concomitant]
  3. KCL [Concomitant]
     Active Substance: POTASSIUM CHLORIDE
  4. SIMVASTATIN. [Concomitant]
     Active Substance: SIMVASTATIN
  5. SPIRONOLACTONE. [Concomitant]
     Active Substance: SPIRONOLACTONE
  6. ASA [Concomitant]
     Active Substance: ASPIRIN
  7. VESICARE [Concomitant]
     Active Substance: SOLIFENACIN SUCCINATE
  8. AMLODIPINE [Concomitant]
     Active Substance: AMLODIPINE BESYLATE
  9. ELIQUIS [Suspect]
     Active Substance: APIXABAN
     Indication: ATRIAL FIBRILLATION
     Dosage: 1
     Route: 048
  10. BISOPROLOL [Concomitant]
     Active Substance: BISOPROLOL
  11. FUROSEMIDE. [Concomitant]
     Active Substance: FUROSEMIDE
  12. RANOLAZINE [Concomitant]
     Active Substance: RANOLAZINE

REACTIONS (11)
  - Abdominal pain [None]
  - Hyperkalaemia [None]
  - Oesophagitis [None]
  - Hydronephrosis [None]
  - Blood creatinine increased [None]
  - Duodenitis [None]
  - Acute kidney injury [None]
  - Obstructive uropathy [None]
  - Gastritis [None]
  - Renal failure [None]
  - Haematemesis [None]

NARRATIVE: CASE EVENT DATE: 20140512
